FAERS Safety Report 23628967 (Version 2)
Quarter: 2024Q2

REPORT INFORMATION
  Report Type: Spontaneous
  Country: US (occurrence: US)
  Receive Date: 20240313
  Receipt Date: 20240509
  Transmission Date: 20240716
  Serious: Yes (Other)
  Sender: FDA-Public Use
  Company Number: US-Calliditas-2024CAL00377

PATIENT
  Age: 37 Year
  Sex: Male

DRUGS (1)
  1. TARPEYO [Suspect]
     Active Substance: BUDESONIDE
     Indication: IgA nephropathy
     Dosage: 16 MG (4 MG CAPSULE) ONCE DAILY
     Route: 048
     Dates: start: 20230210

REACTIONS (3)
  - Blood pressure increased [Unknown]
  - Diabetes mellitus [Unknown]
  - Prescribed underdose [Unknown]
